FAERS Safety Report 4811852-5 (Version None)
Quarter: 2005Q4

REPORT INFORMATION
  Report Type: 
  Country: None (occurrence: None)
  Receive Date: 20051026
  Receipt Date: 20051013
  Transmission Date: 20060501
  Serious: Yes (Death, Life-Threatening, Hospitalization, Other)
  Sender: FDA-Public Use
  Company Number: 2005095042

PATIENT
  Age: 52 Year
  Sex: Male

DRUGS (2)
  1. DIFLUCAN [Suspect]
     Indication: ANTIFUNGAL PROPHYLAXIS
     Dosage: 200 MG (DAILY) ORAL
     Route: 048
     Dates: start: 20040519, end: 20050101
  2. BACTRIM [Concomitant]

REACTIONS (12)
  - BLOOD PRESSURE SYSTOLIC DECREASED [None]
  - CEREBRAL ISCHAEMIA [None]
  - DRUG INEFFECTIVE [None]
  - ELECTROCARDIOGRAM QRS COMPLEX PROLONGED [None]
  - ELECTROCARDIOGRAM QT PROLONGED [None]
  - LOSS OF CONSCIOUSNESS [None]
  - PULSE ABSENT [None]
  - RESPIRATORY ARREST [None]
  - TACHYCARDIA [None]
  - TORSADE DE POINTES [None]
  - VENTRICULAR EXTRASYSTOLES [None]
  - VENTRICULAR TACHYCARDIA [None]
